FAERS Safety Report 10881559 (Version 1)
Quarter: 2015Q1

REPORT INFORMATION
  Report Type: Spontaneous
  Country: US (occurrence: None)
  Receive Date: 20150225
  Receipt Date: 20150225
  Transmission Date: 20150721
  Serious: Yes (Hospitalization)
  Sender: FDA-Public Use
  Company Number: None

PATIENT
  Age: 68 Year
  Sex: Female
  Weight: 131.2 kg

DRUGS (2)
  1. DAUNORUBICIN [Suspect]
     Active Substance: DAUNORUBICIN
     Dates: end: 20150205
  2. CYTARABINE. [Suspect]
     Active Substance: CYTARABINE
     Dates: end: 20150209

REACTIONS (17)
  - Pulmonary hypertension [None]
  - Systolic dysfunction [None]
  - Cardio-respiratory arrest [None]
  - Aspiration [None]
  - Pulmonary oedema [None]
  - Cardiac arrest [None]
  - Pulmonary alveolar haemorrhage [None]
  - Streptococcus test positive [None]
  - Corynebacterium test positive [None]
  - White blood cell count decreased [None]
  - Somnolence [None]
  - Cardiomegaly [None]
  - Arteriosclerosis coronary artery [None]
  - Hypoxia [None]
  - Pneumonia [None]
  - Pleural effusion [None]
  - Ventricular hypokinesia [None]

NARRATIVE: CASE EVENT DATE: 20150217
